FAERS Safety Report 6253136-7 (Version None)
Quarter: 2009Q3

REPORT INFORMATION
  Report Type: 
  Country: None (occurrence: None)
  Receive Date: 20090701
  Receipt Date: 20090623
  Transmission Date: 20100115
  Serious: Yes (Other)
  Sender: FDA-Public Use
  Company Number: CA-ABBOTT-09P-028-0575703-00

PATIENT
  Sex: Female
  Weight: 81.72 kg

DRUGS (18)
  1. HUMIRA [Suspect]
     Indication: CROHN'S DISEASE
     Route: 058
     Dates: start: 20080526, end: 20090506
  2. AZATHIOPRINE [Concomitant]
     Indication: DRUG USE FOR UNKNOWN INDICATION
  3. SALOFAC [Concomitant]
     Indication: DRUG USE FOR UNKNOWN INDICATION
  4. SUPP [Concomitant]
     Indication: DRUG USE FOR UNKNOWN INDICATION
  5. ACTONEL [Concomitant]
     Indication: DRUG USE FOR UNKNOWN INDICATION
  6. ISOPTIN SR [Concomitant]
     Indication: DRUG USE FOR UNKNOWN INDICATION
  7. CARBOCAL [Concomitant]
     Indication: DRUG USE FOR UNKNOWN INDICATION
  8. RIVASA [Concomitant]
     Indication: DRUG USE FOR UNKNOWN INDICATION
  9. SYNTHROID [Concomitant]
     Indication: DRUG USE FOR UNKNOWN INDICATION
  10. DOVOBET [Concomitant]
     Indication: DRUG USE FOR UNKNOWN INDICATION
  11. FLONASE [Concomitant]
     Indication: DRUG USE FOR UNKNOWN INDICATION
  12. ALBUTEROL [Concomitant]
     Indication: DRUG USE FOR UNKNOWN INDICATION
  13. VITAMIN A [Concomitant]
     Indication: ACNE
  14. LOMOTIL [Concomitant]
     Indication: DRUG USE FOR UNKNOWN INDICATION
  15. EMTEC [Concomitant]
     Indication: DRUG USE FOR UNKNOWN INDICATION
  16. PREDNISONE [Concomitant]
     Indication: DRUG USE FOR UNKNOWN INDICATION
  17. DOCUSATE [Concomitant]
     Indication: DRUG USE FOR UNKNOWN INDICATION
  18. CLINDAMYCIN [Concomitant]
     Indication: DRUG USE FOR UNKNOWN INDICATION

REACTIONS (8)
  - BLOOD PRESSURE INCREASED [None]
  - CHEST PAIN [None]
  - COUGH [None]
  - ENDODONTIC PROCEDURE [None]
  - NASOPHARYNGITIS [None]
  - SENSITIVITY OF TEETH [None]
  - TOOTHACHE [None]
  - WHEEZING [None]
